FAERS Safety Report 14387553 (Version 2)
Quarter: 2018Q2

REPORT INFORMATION
  Report Type: Spontaneous
  Country: US (occurrence: US)
  Receive Date: 20180115
  Receipt Date: 20180530
  Transmission Date: 20180711
  Serious: Yes (Other)
  Sender: FDA-Public Use
  Company Number: US-SA-2017SA192355

PATIENT
  Age: 44 Year
  Sex: Female
  Weight: 129.25 kg

DRUGS (6)
  1. TAXOTERE [Suspect]
     Active Substance: DOCETAXEL
     Dosage: 185.2 MG,Q3W
     Route: 051
     Dates: start: 20121030, end: 20121030
  2. TAXOTERE [Suspect]
     Active Substance: DOCETAXEL
     Dosage: UNK
  3. CARBOPLATIN. [Concomitant]
     Active Substance: CARBOPLATIN
     Dosage: 185.2 MG,UNK
     Route: 065
  4. TAXOTERE [Suspect]
     Active Substance: DOCETAXEL
     Indication: BREAST CANCER FEMALE
     Dosage: 185.2 MG,Q3W
     Route: 051
     Dates: start: 20120717, end: 20120717
  5. TRIAMTERENE. [Concomitant]
     Active Substance: TRIAMTERENE
     Dosage: UNK UNK,UNK
     Route: 065
     Dates: start: 201301
  6. HERCEPTIN [Concomitant]
     Active Substance: TRASTUZUMAB
     Dosage: 185.2 MG,UNK
     Route: 065

REACTIONS (2)
  - Psychological trauma [Unknown]
  - Alopecia [Recovering/Resolving]

NARRATIVE: CASE EVENT DATE: 201312
